FAERS Safety Report 4694997-2 (Version None)
Quarter: 2005Q2

REPORT INFORMATION
  Report Type: 
  Country: None (occurrence: None)
  Receive Date: 20050617
  Receipt Date: 20050608
  Transmission Date: 20051028
  Serious: Yes (Death)
  Sender: FDA-Public Use
  Company Number: GBR-2005-0001751

PATIENT
  Age: 96 Year
  Sex: Male

DRUGS (1)
  1. OXYCONTIN [Suspect]
     Dosage: SEE IMAGE
     Dates: start: 20030410

REACTIONS (1)
  - DEATH [None]
